FAERS Safety Report 9326287 (Version 1)
Quarter: 2013Q2

REPORT INFORMATION
  Report Type: Spontaneous
  Country: US (occurrence: US)
  Receive Date: 20130604
  Receipt Date: 20130604
  Transmission Date: 20140414
  Serious: No
  Sender: FDA-Public Use
  Company Number: US-009507513-1201USA01056

PATIENT
  Sex: 0

DRUGS (2)
  1. IVEMEND [Suspect]
     Dosage: UNK MG, UNK
     Route: 041
  2. DOXORUBICIN [Suspect]

REACTIONS (1)
  - Infusion site reaction [Unknown]
